FAERS Safety Report 5059936-3 (Version None)
Quarter: 2006Q3

REPORT INFORMATION
  Report Type: 
  Country: None (occurrence: None)
  Receive Date: 20060718
  Receipt Date: 20060712
  Transmission Date: 20061208
  Serious: Yes (Life-Threatening, Other)
  Sender: FDA-Public Use
  Company Number: BR-2006-018727

PATIENT
  Age: 19 Year
  Sex: Female
  Weight: 55 kg

DRUGS (3)
  1. YASMIN [Suspect]
     Indication: POLYCYSTIC OVARIES
     Dosage: SEE IMAGE
     Route: 048
     Dates: start: 20010801, end: 20030501
  2. YASMIN [Suspect]
     Indication: POLYCYSTIC OVARIES
     Dosage: SEE IMAGE
     Route: 048
     Dates: start: 20030501, end: 20060501
  3. YASMIN [Suspect]
     Indication: POLYCYSTIC OVARIES
     Dosage: SEE IMAGE
     Route: 048
     Dates: start: 20060703, end: 20060709

REACTIONS (16)
  - ASTHENIA [None]
  - COLD SWEAT [None]
  - CYANOSIS [None]
  - DIZZINESS [None]
  - FORMICATION [None]
  - HAIR DISORDER [None]
  - HEADACHE [None]
  - LOSS OF CONSCIOUSNESS [None]
  - MUSCLE SPASMS [None]
  - NAUSEA [None]
  - PAIN [None]
  - SKIN DISORDER [None]
  - SKIN WRINKLING [None]
  - SYNCOPE [None]
  - TREMOR [None]
  - UNEVALUABLE EVENT [None]
